FAERS Safety Report 4878590-4 (Version None)
Quarter: 2006Q1

REPORT INFORMATION
  Report Type: 
  Country: None (occurrence: None)
  Receive Date: 20060112
  Receipt Date: 20040421
  Transmission Date: 20060701
  Serious: Yes (Other)
  Sender: FDA-Public Use
  Company Number: IT-BOEHRINGER INGELHEIM PHARM. INC.-2004-BP-03083BP

PATIENT
  Sex: Male
  Weight: 83 kg

DRUGS (7)
  1. MICARDIS [Suspect]
     Indication: CARDIOVASCULAR DISORDER
     Route: 048
     Dates: start: 20030402, end: 20040401
  2. MICARDIS [Suspect]
     Indication: CEREBROVASCULAR ACCIDENT PROPHYLAXIS
  3. RAMIPRIL [Suspect]
     Indication: CARDIOVASCULAR DISORDER
     Route: 048
     Dates: start: 20030402, end: 20040401
  4. RAMIPRIL [Suspect]
     Indication: CEREBROVASCULAR ACCIDENT PROPHYLAXIS
  5. NITRATE [Suspect]
  6. ASPIRIN [Suspect]
  7. STATINE [Suspect]

REACTIONS (1)
  - PARAPSORIASIS [None]
